FAERS Safety Report 9604194 (Version 4)
Quarter: 2014Q1

REPORT INFORMATION
  Report Type: Spontaneous
  Country: FR (occurrence: FR)
  Receive Date: 20131008
  Receipt Date: 20140129
  Transmission Date: 20141002
  Serious: Yes (Hospitalization)
  Sender: FDA-Public Use
  Company Number: FR-JNJFOC-20131000910

PATIENT
  Age: 42 Year
  Sex: Male
  Weight: 65 kg

DRUGS (3)
  1. PREZISTA [Suspect]
     Indication: HIV INFECTION
     Route: 048
     Dates: start: 20130716
  2. NORVIR [Concomitant]
     Indication: HIV INFECTION
     Route: 048
     Dates: start: 20091203
  3. TRUVADA [Concomitant]
     Indication: HIV INFECTION
     Route: 048
     Dates: start: 20091203

REACTIONS (7)
  - Erythema [Recovering/Resolving]
  - Ulcer [Recovering/Resolving]
  - Tendonitis [Recovering/Resolving]
  - Skin lesion [Recovering/Resolving]
  - Sleep disorder [Recovering/Resolving]
  - Myalgia [Recovering/Resolving]
  - Furuncle [Recovering/Resolving]
